FAERS Safety Report 7565188-2 (Version None)
Quarter: 2011Q2

REPORT INFORMATION
  Report Type: 
  Country: None (occurrence: None)
  Receive Date: 20110622
  Receipt Date: 20080723
  Transmission Date: 20111010
  Serious: Yes (Hospitalization)
  Sender: FDA-Public Use
  Company Number: PHHY2008KR12917

PATIENT
  Sex: Female

DRUGS (1)
  1. EXJADE [Suspect]
     Indication: IRON OVERLOAD
     Dosage: 1000 MG, QD
     Route: 048
     Dates: start: 20070523, end: 20080714

REACTIONS (4)
  - PRODUCTIVE COUGH [None]
  - ABSCESS [None]
  - PNEUMONIA [None]
  - CHEST PAIN [None]
